FAERS Safety Report 9622565 (Version 1)
Quarter: 2013Q4

REPORT INFORMATION
  Report Type: Spontaneous
  Country: US (occurrence: US)
  Receive Date: 20131015
  Receipt Date: 20131015
  Transmission Date: 20140711
  Serious: Yes (Other)
  Sender: FDA-Public Use
  Company Number: US-SA-2013SA099352

PATIENT
  Sex: Female
  Weight: 76 kg

DRUGS (10)
  1. PLAVIX [Suspect]
     Indication: CEREBROVASCULAR ACCIDENT
     Route: 065
  2. PLAVIX [Suspect]
     Indication: TRANSIENT ISCHAEMIC ATTACK
     Route: 065
  3. ELIQUIS [Suspect]
     Route: 048
     Dates: start: 20130805
  4. ASPIRIN [Suspect]
     Route: 065
  5. ZOCOR [Concomitant]
     Route: 065
  6. LISINOPRIL [Concomitant]
     Route: 065
  7. PROZAC [Concomitant]
     Route: 065
  8. PRILOSEC [Concomitant]
     Route: 065
  9. FOLVITE [Concomitant]
     Route: 065
  10. RESTORIL [Concomitant]
     Route: 065

REACTIONS (4)
  - Cerebrovascular accident [Unknown]
  - Tooth disorder [Unknown]
  - Gastric bypass [Unknown]
  - Dyspepsia [Unknown]
